FAERS Safety Report 11749822 (Version 4)
Quarter: 2016Q1

REPORT INFORMATION
  Report Type: Spontaneous
  Country: US (occurrence: US)
  Receive Date: 20151118
  Receipt Date: 20160304
  Transmission Date: 20160525
  Serious: No
  Sender: FDA-Public Use
  Company Number: US-PFIZER INC-2015391972

PATIENT
  Age: 27 Year
  Sex: Male
  Weight: 95 kg

DRUGS (2)
  1. GENOTROPIN MQ [Suspect]
     Active Substance: SOMATROPIN
     Indication: CRANIOCEREBRAL INJURY
     Dosage: 0.06 MG, 1X/DAY
     Dates: start: 20151111
  2. GENOTROPIN MQ [Suspect]
     Active Substance: SOMATROPIN
     Indication: HYPOPITUITARISM
     Dosage: 0.6 MG, DAILY (OD)
     Route: 058
     Dates: start: 20151111

REACTIONS (8)
  - Muscular weakness [Recovered/Resolved]
  - Headache [Recovering/Resolving]
  - Eructation [Not Recovered/Not Resolved]
  - Incorrect route of drug administration [Unknown]
  - Depression [Not Recovered/Not Resolved]
  - Abdominal discomfort [Recovered/Resolved]
  - Feeling abnormal [Not Recovered/Not Resolved]
  - Malaise [Unknown]

NARRATIVE: CASE EVENT DATE: 201511
